FAERS Safety Report 23967057 (Version 1)
Quarter: 2024Q2

REPORT INFORMATION
  Report Type: Spontaneous
  Country: JP (occurrence: JP)
  Receive Date: 20240612
  Receipt Date: 20240612
  Transmission Date: 20240716
  Serious: No
  Sender: FDA-Public Use
  Company Number: JP-PFIZER INC-PV202400072424

PATIENT
  Age: 10 Year
  Sex: Male

DRUGS (1)
  1. NGENLA [Suspect]
     Active Substance: SOMATROGON-GHLA
     Indication: Growth hormone deficiency
     Dosage: UNK

REACTIONS (2)
  - Injection site pain [Recovering/Resolving]
  - Product dose omission in error [Unknown]
